FAERS Safety Report 7952721-1 (Version None)
Quarter: 2011Q4

REPORT INFORMATION
  Report Type: 
  Country: None (occurrence: None)
  Receive Date: 20111129
  Receipt Date: 20111118
  Transmission Date: 20120403
  Serious: Yes (Death, Hospitalization)
  Sender: FDA-Public Use
  Company Number: 2011SP022381

PATIENT
  Age: 16 Year
  Sex: Female

DRUGS (1)
  1. NUVARING [Suspect]
     Indication: MENSTRUAL CYCLE MANAGEMENT
     Dosage: 1 DF; QM; VAG
     Route: 067
     Dates: start: 20100507, end: 20101121

REACTIONS (42)
  - OFF LABEL USE [None]
  - COLD SWEAT [None]
  - NODAL RHYTHM [None]
  - PROTHROMBIN TIME PROLONGED [None]
  - POOR VENOUS ACCESS [None]
  - WHITE BLOOD CELL COUNT DECREASED [None]
  - UNRESPONSIVE TO STIMULI [None]
  - CARDIAC ARREST [None]
  - PLATELET COUNT DECREASED [None]
  - DIZZINESS [None]
  - CHEST PAIN [None]
  - SINUS TACHYCARDIA [None]
  - PALLOR [None]
  - PERIPHERAL COLDNESS [None]
  - TARDIVE DYSKINESIA [None]
  - FALL [None]
  - CHEST DISCOMFORT [None]
  - PULSE ABSENT [None]
  - PUPIL FIXED [None]
  - VENTRICULAR FIBRILLATION [None]
  - BLOOD POTASSIUM DECREASED [None]
  - CONVULSION [None]
  - HAEMOGLOBIN DECREASED [None]
  - PCO2 INCREASED [None]
  - PO2 DECREASED [None]
  - BLOOD SODIUM INCREASED [None]
  - CATHETER SITE HAEMORRHAGE [None]
  - HYPERVENTILATION [None]
  - PULSELESS ELECTRICAL ACTIVITY [None]
  - OXYGEN SATURATION DECREASED [None]
  - BLOOD CHLORIDE INCREASED [None]
  - ACTIVATED PARTIAL THROMBOPLASTIN TIME PROLONGED [None]
  - SYNCOPE [None]
  - BLOOD PH DECREASED [None]
  - FIBRIN D DIMER INCREASED [None]
  - CARBON DIOXIDE DECREASED [None]
  - INTERNATIONAL NORMALISED RATIO INCREASED [None]
  - DEEP VEIN THROMBOSIS [None]
  - NAUSEA [None]
  - STARING [None]
  - AGONAL RHYTHM [None]
  - RESPIRATORY ARREST [None]
